FAERS Safety Report 9647025 (Version 1)
Quarter: 2013Q4

REPORT INFORMATION
  Report Type: Spontaneous
  Country: US (occurrence: US)
  Receive Date: 20131027
  Receipt Date: 20131027
  Transmission Date: 20140711
  Serious: No
  Sender: FDA-Public Use
  Company Number: US-PURDUE-USA-2013-0104068

PATIENT
  Sex: Male
  Weight: 91.61 kg

DRUGS (7)
  1. OXYCONTIN (NDA 22-272) [Suspect]
     Indication: NEURALGIA
     Dosage: UNK
     Route: 048
  2. PERCOCET /00446701/ [Suspect]
     Indication: NEURALGIA
     Dosage: UNK
     Route: 048
  3. DARVOCET /00758701/ [Suspect]
     Indication: NEURALGIA
     Dosage: UNK
     Route: 065
  4. ZOFRAN                             /00955302/ [Concomitant]
     Indication: PRODUCT USED FOR UNKNOWN INDICATION
     Route: 065
  5. BACLOFEN [Concomitant]
     Indication: PRODUCT USED FOR UNKNOWN INDICATION
     Dosage: 40 CC
     Route: 058
  6. LYRICA [Concomitant]
     Indication: NEURALGIA
     Dosage: 300 MG, BID
     Route: 065
  7. MUSCLE RELAXANTS [Concomitant]
     Indication: MUSCLE RELAXANT THERAPY
     Dosage: 10MG IN MORNING, 20MG AT NIGHT
     Route: 065

REACTIONS (1)
  - Drug ineffective [Unknown]
